FAERS Safety Report 11583842 (Version 1)
Quarter: 2015Q4

REPORT INFORMATION
  Report Type: Spontaneous
  Country: US (occurrence: US)
  Receive Date: 20151001
  Receipt Date: 20151001
  Transmission Date: 20160304
  Serious: Yes (Other)
  Sender: FDA-Public Use
  Company Number: US-ROCHE-666443

PATIENT
  Age: 45 Year
  Sex: Male

DRUGS (7)
  1. RIBAVIRIN. [Suspect]
     Active Substance: RIBAVIRIN
     Indication: HEPATITIS C
     Dosage: FREQUENCY: QD; THERAPY TEMPORARILY DISCONTINUED
     Route: 048
     Dates: start: 20031125, end: 20040830
  2. TRIZIVIR [Concomitant]
     Active Substance: ABACAVIR SULFATE\LAMIVUDINE\ZIDOVUDINE
     Route: 065
  3. PEGASYS [Suspect]
     Active Substance: PEGINTERFERON ALFA-2A
     Indication: HEPATITIS C
     Route: 065
  4. RIBAVIRIN. [Suspect]
     Active Substance: RIBAVIRIN
     Route: 048
  5. PEGINTRON [Suspect]
     Active Substance: PEGINTERFERON ALFA-2B
     Indication: HEPATITIS C
     Dosage: FREQUENCY: QW
     Route: 065
     Dates: start: 20031125, end: 20040830
  6. NICODERM CQ [Concomitant]
     Active Substance: NICOTINE
     Dosage: DRUG: NICODERM PATCH
     Route: 065
  7. SUSTIVA [Concomitant]
     Active Substance: EFAVIRENZ
     Route: 065

REACTIONS (5)
  - Fatigue [Recovered/Resolved]
  - Blood thyroid stimulating hormone abnormal [Not Recovered/Not Resolved]
  - Cognitive disorder [Recovered/Resolved]
  - Disease recurrence [Unknown]
  - Mental fatigue [Recovered/Resolved]

NARRATIVE: CASE EVENT DATE: 20051130
